FAERS Safety Report 9013456 (Version 1)
Quarter: 2013Q1

REPORT INFORMATION
  Report Type: Spontaneous
  Country: US (occurrence: None)
  Receive Date: 20130107
  Receipt Date: 20130107
  Transmission Date: 20140127
  Serious: Yes (Hospitalization)
  Sender: FDA-Public Use
  Company Number: None

PATIENT
  Sex: Female
  Weight: 32.5 kg

DRUGS (2)
  1. TEMOZOLOMIDE [Suspect]
     Indication: GLIOBLASTOMA MULTIFORME
     Dosage: 160MG DAY 1-5 OF 28D CYCLE BY MOUTH
     Route: 048
     Dates: start: 20121204, end: 20121208
  2. TEMOZOLOMIDE [Suspect]
     Indication: GLIOBLASTOMA MULTIFORME
     Dosage: 125MG DAY 1-5 28D CYCLE BY MOUTH
     Route: 048

REACTIONS (3)
  - Dyspnoea [None]
  - Oxygen saturation decreased [None]
  - Blood pressure decreased [None]
